FAERS Safety Report 5149390-5 (Version None)
Quarter: 2006Q4

REPORT INFORMATION
  Report Type: 
  Country: None (occurrence: None)
  Receive Date: 20061113
  Receipt Date: 20051215
  Transmission Date: 20070319
  Serious: No
  Sender: FDA-Public Use
  Company Number: 428882

PATIENT
  Age: 65 Year
  Sex: Male

DRUGS (3)
  1. COREG [Suspect]
     Route: 048
     Dates: start: 19950101, end: 19950101
  2. ZOCOR [Concomitant]
  3. LANOXIN [Concomitant]

REACTIONS (1)
  - ASTHENIA [None]
